FAERS Safety Report 8920101 (Version 1)
Quarter: 2012Q4

REPORT INFORMATION
  Report Type: Report from Study
  Country: US (occurrence: US)
  Receive Date: 20121121
  Receipt Date: 20121121
  Transmission Date: 20130627
  Serious: Yes (Other)
  Sender: FDA-Public Use
  Company Number: US-BAYER-2012-119437

PATIENT
  Age: 13 Year
  Sex: Female

DRUGS (2)
  1. NEXAVAR [Suspect]
     Dosage: 400 mg daily
  2. NEXAVAR [Suspect]

REACTIONS (3)
  - Blister [None]
  - Abasia [None]
  - Off label use [None]
